FAERS Safety Report 8329384-9 (Version None)
Quarter: 2012Q2

REPORT INFORMATION
  Report Type: 
  Country: None (occurrence: None)
  Receive Date: 20120502
  Receipt Date: 20120423
  Transmission Date: 20120825
  Serious: Yes (Other)
  Sender: FDA-Public Use
  Company Number: AU-ROCHE-1043355

PATIENT
  Sex: Female

DRUGS (2)
  1. LUCENTIS [Suspect]
     Indication: AGE-RELATED MACULAR DEGENERATION
     Dosage: IN RIGHT EYE
     Route: 050
     Dates: start: 20111102
  2. LUCENTIS [Suspect]
     Dosage: IN LEFT EYE
     Route: 050
     Dates: start: 20120201

REACTIONS (2)
  - MACULAR DEGENERATION [None]
  - AGE-RELATED MACULAR DEGENERATION [None]
